FAERS Safety Report 6772548-6 (Version None)
Quarter: 2010Q2

REPORT INFORMATION
  Report Type: 
  Country: None (occurrence: None)
  Receive Date: 20100616
  Receipt Date: 20090429
  Transmission Date: 20101027
  Serious: No
  Sender: FDA-Public Use
  Company Number: US-ASTRAZENECA-2009UW10680

PATIENT
  Sex: Female
  Weight: 108.9 kg

DRUGS (4)
  1. PULMICORT RESPULES [Suspect]
     Indication: SINUS DISORDER
     Route: 055
  2. NEXIUM [Concomitant]
     Indication: COUGH
  3. ASTEPRO [Concomitant]
  4. LOTREL [Concomitant]
     Indication: HYPERTENSION

REACTIONS (3)
  - HEADACHE [None]
  - INCORRECT ROUTE OF DRUG ADMINISTRATION [None]
  - VISION BLURRED [None]
